FAERS Safety Report 17262569 (Version 3)
Quarter: 2020Q1

REPORT INFORMATION
  Report Type: Spontaneous
  Country: US (occurrence: US)
  Receive Date: 20200113
  Receipt Date: 20200210
  Transmission Date: 20200409
  Serious: No
  Sender: FDA-Public Use
  Company Number: US-PFIZER INC-2020010704

PATIENT
  Age: 52 Year
  Sex: Male

DRUGS (10)
  1. ALPRAZOLAM. [Suspect]
     Active Substance: ALPRAZOLAM
     Indication: ANXIETY
     Dosage: 1 MG, 3X/DAY
     Route: 048
  2. ALPRAZOLAM. [Suspect]
     Active Substance: ALPRAZOLAM
     Dosage: 3 MG, DAILY (1MG, 3 TABLET PER DAY, WHEN NEEDED)
     Route: 048
  3. ALPRAZOLAM. [Suspect]
     Active Substance: ALPRAZOLAM
     Indication: SLEEP DISORDER
     Dosage: UNK, (TAKES 1 AS NEEDED THEN 2 AT NIGHT, LATELY TAKING MORE THAN 2 AT NIGHT, LIKE 2.5)
  4. CLOPIDOGREL [Concomitant]
     Active Substance: CLOPIDOGREL BISULFATE
     Indication: ARTERIAL OCCLUSIVE DISEASE
     Dosage: 75 MG, 1X/DAY (75 MG; ONCE A DAY EVERY DAY)
     Dates: start: 2018
  5. FLONASE [Concomitant]
     Active Substance: FLUTICASONE PROPIONATE
     Indication: HYPERSENSITIVITY
  6. CLARITIN [Concomitant]
     Active Substance: LORATADINE
     Indication: HYPERSENSITIVITY
     Dosage: UNK (I THINK ITS 1 MG I AM NOT SURE ABOUT THE EXACT MG)
  7. MELATONIN [Concomitant]
     Active Substance: MELATONIN
     Indication: SLEEP DISORDER
     Dosage: 5 MG, 1X/DAY, (ONE AT NIGHT   )
  8. CLOPIDOGREL [Concomitant]
     Active Substance: CLOPIDOGREL BISULFATE
     Indication: ANTICOAGULANT THERAPY
  9. FLONASE [Concomitant]
     Active Substance: FLUTICASONE PROPIONATE
     Indication: SINUS DISORDER
     Dosage: UNK, ((2 SPRAYS IN EACH NOSTRIL; 50 MCG PER SPRAY NASAL SPRAYS)
     Route: 045
  10. ASAPRIN [Concomitant]
     Active Substance: ASPIRIN
     Dosage: 17 MG, DAILY
     Route: 048

REACTIONS (2)
  - Intentional product use issue [Unknown]
  - Drug ineffective [Unknown]
